FAERS Safety Report 8210741-6 (Version None)
Quarter: 2012Q1

REPORT INFORMATION
  Report Type: 
  Country: None (occurrence: None)
  Receive Date: 20120315
  Receipt Date: 20120309
  Transmission Date: 20120608
  Serious: Yes (Other)
  Sender: FDA-Public Use
  Company Number: US-BIOGENIDEC-2012BI002273

PATIENT
  Age: 45 Year
  Sex: Female

DRUGS (6)
  1. BIOTIN [Concomitant]
     Route: 048
  2. VITAMIN D [Concomitant]
     Route: 048
  3. VENTOLIN DS [Concomitant]
     Indication: WHEEZING
  4. SYNTHROID [Concomitant]
     Route: 048
  5. TYLENOL [Concomitant]
     Indication: PREMEDICATION
     Route: 048
  6. TYSABRI [Suspect]
     Indication: MULTIPLE SCLEROSIS
     Route: 042
     Dates: start: 20100426

REACTIONS (1)
  - BREAST CANCER [None]
